FAERS Safety Report 4910037-1 (Version None)
Quarter: 2006Q1

REPORT INFORMATION
  Report Type: 
  Country: None (occurrence: None)
  Receive Date: 20060208
  Receipt Date: 20060203
  Transmission Date: 20060701
  Serious: Yes (Other)
  Sender: FDA-Public Use
  Company Number: 200610403GDS

PATIENT
  Age: 70 Year
  Sex: Male

DRUGS (13)
  1. AVELOX [Suspect]
     Dosage: 400 MG QD ORAL
     Route: 048
  2. WARFARIN SODIUM [Suspect]
     Dosage: 3.5 MG TOTAL DAILY ORAL
     Route: 048
  3. CARVEDILOL [Concomitant]
  4. DIGOXIN [Concomitant]
  5. ENALAPRIL [Concomitant]
  6. FUROSEMIDE [Concomitant]
  7. IV FLUIDS [Concomitant]
  8. LIPITOR [Concomitant]
  9. METAZOLONE [Concomitant]
  10. NYSTATIN [Concomitant]
  11. SPIRONOLACTONE [Concomitant]
  12. VITAMIN E [Concomitant]
  13. ZOPICLONE [Concomitant]

REACTIONS (8)
  - ANOREXIA [None]
  - CHILLS [None]
  - DEHYDRATION [None]
  - HAEMOGLOBIN DECREASED [None]
  - PNEUMONIA [None]
  - PROTHROMBIN LEVEL DECREASED [None]
  - RENAL FAILURE [None]
  - VOMITING [None]
